FAERS Safety Report 4660400-1 (Version None)
Quarter: 2005Q2

REPORT INFORMATION
  Report Type: 
  Country: None (occurrence: None)
  Receive Date: 20050512
  Receipt Date: 20050502
  Transmission Date: 20051028
  Serious: Yes (Hospitalization)
  Sender: FDA-Public Use
  Company Number: 200511518FR

PATIENT
  Age: 74 Year
  Sex: Female

DRUGS (6)
  1. LASILIX [Suspect]
     Route: 048
     Dates: end: 20050303
  2. ISOPTIN [Suspect]
     Route: 048
  3. DAFALGAN [Suspect]
     Route: 048
  4. EUPRESSYL [Suspect]
     Route: 048
  5. COVERSYL [Suspect]
     Route: 048
  6. GEMZAR [Suspect]
     Route: 042
     Dates: start: 20050120, end: 20050120

REACTIONS (1)
  - RENAL FAILURE [None]
